FAERS Safety Report 18575139 (Version 4)
Quarter: 2024Q4

REPORT INFORMATION
  Report Type: Spontaneous
  Country: US (occurrence: US)
  Receive Date: 20201203
  Receipt Date: 20241210
  Transmission Date: 20250115
  Serious: Yes (Other)
  Sender: PFIZER
  Company Number: US-PFIZER INC-2020358127

PATIENT
  Age: 82 Year
  Sex: Female
  Weight: 51.6 kg

DRUGS (6)
  1. IBRANCE [Suspect]
     Active Substance: PALBOCICLIB
     Indication: Breast cancer female
     Dosage: 3 WEEKS ON AND 1 WEEK OFF
     Dates: start: 20201011
  2. IBRANCE [Suspect]
     Active Substance: PALBOCICLIB
     Indication: Breast cancer metastatic
     Dosage: DAILY, 3 WEEKS ON AND 1 WEEK OFF
     Route: 048
     Dates: start: 20201201
  3. IBRANCE [Suspect]
     Active Substance: PALBOCICLIB
     Dosage: DAILY, 3 WEEKS ON AND 1 WEEK OFF/TAKE ON DAYS 1-21 OF EACH 28-DAY CYCLE
     Route: 048
     Dates: start: 20210726
  4. LETROZOLE [Concomitant]
     Active Substance: LETROZOLE
     Dosage: UNK, DAILY
  5. XGEVA [Concomitant]
     Active Substance: DENOSUMAB
     Dosage: UNK UNK, EVERY 3 MONTHS
  6. DENOSUMAB [Concomitant]
     Active Substance: DENOSUMAB

REACTIONS (6)
  - Neutropenia [Recovering/Resolving]
  - Skin lesion [Unknown]
  - Diarrhoea [Unknown]
  - Drug intolerance [Unknown]
  - Stomatitis [Recovering/Resolving]
  - Iron deficiency anaemia [Unknown]
